FAERS Safety Report 11368194 (Version 1)
Quarter: 2015Q3

REPORT INFORMATION
  Report Type: Spontaneous
  Country: FR (occurrence: None)
  Receive Date: 20150810
  Receipt Date: 20150810
  Transmission Date: 20151125
  Serious: No
  Sender: FDA-Public Use
  Company Number: FR-2015-3347

PATIENT
  Age: 74 Year
  Sex: Male

DRUGS (5)
  1. NAVELBINE [Suspect]
     Active Substance: VINORELBINE TARTRATE
     Indication: LUNG ADENOCARCINOMA
     Dosage: CYCLE 1
     Route: 042
     Dates: start: 20150603
  2. CARBOPLATINE (CARBOPLATIN) [Concomitant]
  3. ALIMTA (PEMETREXED DISODIUM) [Concomitant]
  4. NPLATE [Concomitant]
     Active Substance: ROMIPLOSTIM
  5. GEMCITABINE [Concomitant]
     Active Substance: GEMCITABINE\GEMCITABINE HYDROCHLORIDE

REACTIONS (5)
  - Asthenia [None]
  - Gingivitis [None]
  - Neutropenia [None]
  - Toothache [None]
  - Thrombocytopenia [None]

NARRATIVE: CASE EVENT DATE: 20150607
